FAERS Safety Report 16685512 (Version 2)
Quarter: 2019Q4

REPORT INFORMATION
  Report Type: Spontaneous
  Country: US (occurrence: US)
  Receive Date: 20190809
  Receipt Date: 20191104
  Transmission Date: 20200122
  Serious: No
  Sender: FDA-Public Use
  Company Number: US-SA-2019SA216333

PATIENT
  Age: 57 Year
  Sex: Male
  Weight: 73 kg

DRUGS (18)
  1. ATORVASTATIN [Concomitant]
     Active Substance: ATORVASTATIN
     Dosage: 1 DF, QD
     Route: 048
     Dates: start: 20170215
  2. LISINOPRIL. [Concomitant]
     Active Substance: LISINOPRIL
     Dosage: 1 DF, QD
     Route: 048
     Dates: start: 20181205
  3. SENOKOT [Concomitant]
     Active Substance: SENNOSIDES
     Dosage: 1 DF, QD
     Route: 048
     Dates: start: 20170215
  4. GABAPENTIN. [Concomitant]
     Active Substance: GABAPENTIN
     Dosage: 3 DF, 1 TAB IN AM AND 2 IN PM
     Route: 048
     Dates: start: 20170215
  5. IRON [Concomitant]
     Active Substance: IRON
     Dosage: 1 DF, UNK
     Route: 048
     Dates: start: 20170215
  6. STERILE WATER [Concomitant]
     Active Substance: WATER
     Dosage: UNK UNK, UNK
     Route: 042
     Dates: start: 20190125
  7. FABRAZYME [Suspect]
     Active Substance: AGALSIDASE BETA
     Indication: FABRY^S DISEASE
     Dosage: 1 MG/KG, QOW
     Route: 041
     Dates: start: 20080407
  8. COLACE [Concomitant]
     Active Substance: DOCUSATE SODIUM
     Dosage: 1 DF, QD
     Route: 048
     Dates: start: 20170215
  9. EPINEPHRINE. [Concomitant]
     Active Substance: EPINEPHRINE
     Dosage: 0.3 MG, PRN
     Route: 030
     Dates: start: 20190125
  10. ASPIRIN [ACETYLSALICYLIC ACID] [Concomitant]
     Active Substance: ASPIRIN
     Dosage: 1 DF, QD
     Route: 048
     Dates: start: 20170215
  11. HYDROXYZINE [Concomitant]
     Active Substance: HYDROXYZINE HYDROCHLORIDE
     Dosage: 1 DF, QOW
     Route: 048
     Dates: start: 20170215
  12. NORMAL SALINE 0.9% [Concomitant]
     Dosage: UNK UNK, UNK
     Route: 042
     Dates: start: 20190125
  13. HYDROCODONE/ACETAMINOPHEN [Concomitant]
     Active Substance: ACETAMINOPHEN\HYDROCODONE
     Dosage: 5-325 MG
     Route: 048
     Dates: start: 20190717
  14. NORTRIPTYLINE [Concomitant]
     Active Substance: NORTRIPTYLINE
     Dosage: 1 DF, QD
     Route: 048
     Dates: start: 20170215
  15. COLECALCIFEROL [Concomitant]
     Active Substance: CHOLECALCIFEROL
     Dosage: 2000 IU, QD
     Route: 048
     Dates: start: 20170215
  16. TYLENOL [Concomitant]
     Active Substance: ACETAMINOPHEN
     Dosage: 650 MG, QOW
     Route: 048
     Dates: start: 20170215
  17. DIAZEPAM. [Concomitant]
     Active Substance: DIAZEPAM
     Dosage: BID, PRN
     Route: 065
     Dates: start: 20170215
  18. SODIUM CHLORIDE 0.9% [Concomitant]
     Active Substance: SODIUM CHLORIDE
     Dosage: UNK UNK, UNK
     Route: 042
     Dates: start: 20190125

REACTIONS (4)
  - Cardiac pacemaker insertion [Unknown]
  - Mental disorder [Unknown]
  - Pain [Unknown]
  - Muscle spasms [Unknown]

NARRATIVE: CASE EVENT DATE: 20191009
